FAERS Safety Report 6299137-4 (Version None)
Quarter: 2009Q3

REPORT INFORMATION
  Report Type: 
  Country: None (occurrence: None)
  Receive Date: 20090803
  Receipt Date: 20090723
  Transmission Date: 20100115
  Serious: Yes (Hospitalization, Other)
  Sender: FDA-Public Use
  Company Number: 2009AP003025

PATIENT
  Age: 58 Year
  Sex: Male

DRUGS (3)
  1. LITHIUM CARBONATE CAP [Suspect]
     Indication: BIPOLAR DISORDER
     Dosage: 600 MG; BID
  2. LEVOTHYROXINE [Concomitant]
  3. GLIBENCLAMIDE [Concomitant]

REACTIONS (15)
  - BACK PAIN [None]
  - BLOOD CREATININE INCREASED [None]
  - BLOOD UREA INCREASED [None]
  - CHEST PAIN [None]
  - CONFUSIONAL STATE [None]
  - DRUG LEVEL ABOVE THERAPEUTIC [None]
  - DYSPNOEA [None]
  - IMPAIRED SELF-CARE [None]
  - MUCOSAL DRYNESS [None]
  - NODAL RHYTHM [None]
  - OBESITY [None]
  - RENAL FAILURE ACUTE [None]
  - SINUS BRADYCARDIA [None]
  - THERAPEUTIC AGENT TOXICITY [None]
  - TREMOR [None]
